FAERS Safety Report 23463418 (Version 1)
Quarter: 2024Q1

REPORT INFORMATION
  Report Type: Spontaneous
  Country: AT (occurrence: AT)
  Receive Date: 20240131
  Receipt Date: 20240131
  Transmission Date: 20240410
  Serious: Yes (Hospitalization, Other)
  Sender: FDA-Public Use
  Company Number: AT-GILEAD-2024-0659780

PATIENT
  Age: 56 Year
  Sex: Male

DRUGS (1)
  1. YESCARTA [Suspect]
     Active Substance: AXICABTAGENE CILOLEUCEL
     Indication: Diffuse large B-cell lymphoma
     Route: 065

REACTIONS (11)
  - Bacteraemia [Recovered/Resolved]
  - Pancytopenia [Recovered/Resolved]
  - Cytopenia [Recovered/Resolved]
  - Cytokine release syndrome [Recovered/Resolved]
  - Immune effector cell-associated neurotoxicity syndrome [Recovered/Resolved]
  - Febrile neutropenia [Recovered/Resolved]
  - Infection [Recovered/Resolved]
  - Glucose tolerance impaired [Recovered/Resolved]
  - COVID-19 [Recovered/Resolved]
  - Aeromonas test positive [Recovered/Resolved]
  - Escherichia test positive [Recovered/Resolved]
